FAERS Safety Report 8614363 (Version 3)
Quarter: 2012Q4

REPORT INFORMATION
  Report Type: 
  Country: JP (occurrence: None)
  Receive Date: 20120531
  Receipt Date: 20120911
  Transmission Date: 20130627
  Serious: Yes (Hospitalization, Other)
  Sender: FDA-Public Use
  Company Number: 2012PL000097

PATIENT
  Age: 74 Year
  Sex: Male

DRUGS (9)
  1. PROLEUKIN [Suspect]
     Indication: METASTATIC RENAL CELL CARCINOMA
     Dosage: UNK
  2. EVEROLIMUS [Suspect]
     Indication: RENAL CELL CARCINOMA
     Dosage: 10 MG, QD, PO
     Route: 048
     Dates: start: 20100930
  3. SUNITINIB MALATE [Concomitant]
  4. INTERFERON ALFA [Concomitant]
  5. SORAFENIB TOSILATE [Concomitant]
  6. TECELEUKIN [Concomitant]
  7. PAXIL [Concomitant]
  8. ALLOPURINOL [Concomitant]
  9. CRESTOR [Concomitant]

REACTIONS (5)
  - Interstitial lung disease [None]
  - Enterocolitis [None]
  - Hyperglycaemia [None]
  - Sepsis [None]
  - Metastases to lung [None]
